FAERS Safety Report 15685392 (Version 1)
Quarter: 2018Q4

REPORT INFORMATION
  Report Type: Spontaneous
  Country: US (occurrence: US)
  Receive Date: 20181204
  Receipt Date: 20181204
  Transmission Date: 20190205
  Serious: No
  Sender: FDA-Public Use
  Company Number: US-ADAAP-201700266

PATIENT
  Age: 74 Year
  Sex: Female
  Weight: 73.5 kg

DRUGS (2)
  1. BARIUM [Concomitant]
     Active Substance: BARIUM
     Indication: SCAN WITH CONTRAST
     Route: 048
     Dates: start: 20170720, end: 20170720
  2. NETSPOT [Suspect]
     Active Substance: DOTATATE GALLIUM GA-68
     Indication: POSITRON EMISSION TOMOGRAM
     Route: 042
     Dates: start: 20170720, end: 20170720

REACTIONS (3)
  - Abdominal pain upper [Recovered/Resolved]
  - Nausea [Recovered/Resolved]
  - Vomiting [Recovered/Resolved]

NARRATIVE: CASE EVENT DATE: 20170720
